FAERS Safety Report 4417999-X (Version None)
Quarter: 2004Q3

REPORT INFORMATION
  Report Type: 
  Country: None (occurrence: None)
  Receive Date: 20040804
  Receipt Date: 20040729
  Transmission Date: 20050211
  Serious: Yes (Death, Hospitalization)
  Sender: FDA-Public Use
  Company Number: TCI2004A01143

PATIENT
  Age: 67 Year
  Sex: Male

DRUGS (8)
  1. PIOGLITAZONE HYDROCHLORIDE (PIOGLITAZONE HYDROCHLORIDE) [Suspect]
     Indication: DIABETES MELLITUS NON-INSULIN-DEPENDENT
     Dosage: 30 MG (30 MG, 1 IN 1 D), ORAL
     Route: 048
     Dates: start: 20030508, end: 20040725
  2. NORVASC [Concomitant]
  3. CETIRIZINE HCL [Concomitant]
  4. GLIMEPIRIDE [Concomitant]
  5. PIRENOXINE [Concomitant]
  6. ANTUP R (ISOSORBIDE DINITRATE) [Concomitant]
  7. ASPIRIN [Concomitant]
  8. WARFARIN SODIUM [Concomitant]

REACTIONS (4)
  - ACUTE MYOCARDIAL INFARCTION [None]
  - ASTHENIA [None]
  - CAROTID ARTERY STENOSIS [None]
  - CEREBRAL INFARCTION [None]
